FAERS Safety Report 7179859-3 (Version None)
Quarter: 2010Q4

REPORT INFORMATION
  Report Type: 
  Country: None (occurrence: None)
  Receive Date: 20101221
  Receipt Date: 20101208
  Transmission Date: 20110411
  Serious: Yes (Other)
  Sender: FDA-Public Use
  Company Number: JP-PFIZER INC-2010167376

PATIENT
  Age: 37 Year
  Sex: Male

DRUGS (3)
  1. METHOTREXATE [Suspect]
     Indication: LEIOMYOSARCOMA
     Dosage: UNK
     Dates: start: 20020101
  2. ADRIAMYCIN PFS [Suspect]
     Dosage: UNK
     Dates: start: 20020101
  3. CISPLATIN [Concomitant]
     Indication: LEIOMYOSARCOMA
     Dosage: UNK
     Dates: start: 20020101

REACTIONS (2)
  - ACUTE MYELOID LEUKAEMIA [None]
  - MENINGEAL DISORDER [None]
